FAERS Safety Report 9245660 (Version 1)
Quarter: 2013Q2

REPORT INFORMATION
  Report Type: Spontaneous
  Country: US (occurrence: US)
  Receive Date: 20130422
  Receipt Date: 20130422
  Transmission Date: 20140414
  Serious: No
  Sender: FDA-Public Use
  Company Number: US-009507513-1304USA008454

PATIENT
  Age: 38 Year
  Sex: Female

DRUGS (1)
  1. NUVARING [Suspect]
     Indication: DRUG THERAPY
     Dosage: 1 RING FOR 3 WEEKS
     Route: 067
     Dates: start: 2012

REACTIONS (2)
  - Migraine [Unknown]
  - Hypoaesthesia [Unknown]
